FAERS Safety Report 6260652-0 (Version None)
Quarter: 2009Q3

REPORT INFORMATION
  Report Type: 
  Country: None (occurrence: None)
  Receive Date: 20090708
  Receipt Date: 20090608
  Transmission Date: 20100115
  Serious: No
  Sender: FDA-Public Use
  Company Number: US-BAYER-200911773BCC

PATIENT
  Age: 76 Year
  Sex: Female
  Weight: 59 kg

DRUGS (6)
  1. ALEVE [Suspect]
     Indication: ARTHRITIS
     Dosage: AS USED: 440 MG  UNIT DOSE: 220 MG
     Route: 048
     Dates: start: 20090605, end: 20090605
  2. ALEVE [Suspect]
     Dosage: TOTAL DAILY DOSE: 880 MG  UNIT DOSE: 220 MG
     Route: 048
     Dates: start: 20090606, end: 20090606
  3. ALEVE [Suspect]
     Dosage: TOTAL DAILY DOSE: 440 MG  UNIT DOSE: 220 MG
     Route: 048
     Dates: start: 20090607
  4. SIMVASTATIN [Concomitant]
     Indication: DRUG USE FOR UNKNOWN INDICATION
     Route: 065
  5. EXTRA STRENGTH TYLENOL [Concomitant]
     Indication: ARTHRALGIA
     Dosage: 1 EXTRA STRENGTH TYLENOL
     Route: 065
     Dates: start: 20090606
  6. TYLENOL PM [Concomitant]
     Indication: ARTHRALGIA
     Dosage: 1 TYLENOL ON 05 AND 07-JUN-2009
     Route: 065
     Dates: start: 20090605

REACTIONS (1)
  - CONSTIPATION [None]
